FAERS Safety Report 9618634 (Version 1)
Quarter: 2013Q4

REPORT INFORMATION
  Report Type: Spontaneous
  Country: US (occurrence: US)
  Receive Date: 20131014
  Receipt Date: 20131014
  Transmission Date: 20140711
  Serious: No
  Sender: FDA-Public Use
  Company Number: US-PFIZER INC-2013293717

PATIENT
  Age: 47 Year
  Sex: Female
  Weight: 109 kg

DRUGS (3)
  1. NEURONTIN [Suspect]
     Indication: NEURALGIA
     Dosage: 600 MG, 3X/DAY
     Dates: start: 2013
  2. ROBAXIN [Concomitant]
     Dosage: 100 MG, 3X/DAY
  3. PERCOCET [Concomitant]
     Dosage: OXYCODONE (5MG) / ACETAMINOPHEN (325 MG), EVERY 6 HOURS

REACTIONS (1)
  - Drug ineffective [Unknown]
